FAERS Safety Report 23988565 (Version 1)
Quarter: 2024Q2

REPORT INFORMATION
  Report Type: Spontaneous
  Country: RS (occurrence: RS)
  Receive Date: 20240619
  Receipt Date: 20240619
  Transmission Date: 20240716
  Serious: Yes (Hospitalization, Other)
  Sender: FDA-Public Use
  Company Number: RS-JNJFOC-20240638053

PATIENT
  Age: 3 Decade
  Sex: Male

DRUGS (8)
  1. RISPERIDONE [Suspect]
     Active Substance: RISPERIDONE
     Indication: Schizoaffective disorder depressive type
     Route: 030
     Dates: start: 2013
  2. RISPERIDONE [Suspect]
     Active Substance: RISPERIDONE
     Route: 030
  3. RISPERIDONE [Suspect]
     Active Substance: RISPERIDONE
  4. RISPERIDONE [Suspect]
     Active Substance: RISPERIDONE
  5. RISPERIDONE [Suspect]
     Active Substance: RISPERIDONE
     Indication: Schizoaffective disorder depressive type
     Dosage: 1+1+0
     Route: 065
     Dates: start: 2013
  6. LORAZEPAM [Suspect]
     Active Substance: LORAZEPAM
     Indication: Schizoaffective disorder depressive type
     Dosage: 1MG 1+0+1
     Route: 065
     Dates: start: 2013
  7. VALPROIC ACID [Suspect]
     Active Substance: VALPROIC ACID
     Indication: Schizoaffective disorder depressive type
     Dosage: 1/2+0+1/2
     Route: 065
     Dates: start: 2013
  8. VALPROIC ACID [Suspect]
     Active Substance: VALPROIC ACID
     Dosage: 1/2+1/2+1
     Route: 065

REACTIONS (8)
  - Suicide attempt [Recovering/Resolving]
  - Hallucination, auditory [Recovering/Resolving]
  - Nervousness [Recovering/Resolving]
  - Insomnia [Recovering/Resolving]
  - Tension [Recovering/Resolving]
  - Depression [Recovering/Resolving]
  - Persecutory delusion [Recovering/Resolving]
  - Product dose omission issue [Unknown]

NARRATIVE: CASE EVENT DATE: 20130101
